FAERS Safety Report 9452420 (Version 3)
Quarter: 2014Q2

REPORT INFORMATION
  Report Type: Spontaneous
  Country: US (occurrence: US)
  Receive Date: 20130812
  Receipt Date: 20140603
  Transmission Date: 20141212
  Serious: Yes (Hospitalization)
  Sender: FDA-Public Use
  Company Number: US-BAYER-2013-095541

PATIENT
  Age: 41 Year
  Sex: Female
  Weight: 110.66 kg

DRUGS (7)
  1. YAZ [Suspect]
     Indication: CONTRACEPTION
     Dosage: UNK
     Dates: start: 20080815, end: 20090530
  2. YAZ [Suspect]
     Indication: PREMENSTRUAL SYNDROME
  3. TYLENOL [PARACETAMOL] [Concomitant]
  4. LISINOPRIL [Concomitant]
     Dosage: 20 MG, DAILY
     Route: 048
  5. METFORMIN [Concomitant]
     Dosage: 500 MG, TWICE DAILY
     Route: 048
  6. MICARDIS [Concomitant]
  7. LIPITOR [Concomitant]

REACTIONS (10)
  - Pulmonary embolism [Recovered/Resolved]
  - Peripheral swelling [None]
  - Pleuritic pain [Recovered/Resolved]
  - Dyspnoea [Recovered/Resolved]
  - Pain [None]
  - Injury [Recovered/Resolved]
  - General physical health deterioration [Recovered/Resolved]
  - Emotional distress [None]
  - Anxiety [None]
  - Pain [Recovered/Resolved]
